FAERS Safety Report 8587219-3 (Version None)
Quarter: 2012Q3

REPORT INFORMATION
  Report Type: 
  Country: None (occurrence: None)
  Receive Date: 20120810
  Receipt Date: 20110809
  Transmission Date: 20120928
  Serious: No
  Sender: FDA-Public Use
  Company Number: US-ASTRAZENECA-2011SE47633

PATIENT
  Age: 58 Year
  Sex: Female
  Weight: 56.7 kg

DRUGS (7)
  1. ARIMIDEX [Suspect]
     Indication: BREAST CANCER
     Route: 048
     Dates: start: 20100901, end: 20110401
  2. POTASSIUM CHLORIDE [Concomitant]
  3. VITAMIN D [Concomitant]
  4. ARIMIDEX [Suspect]
     Route: 048
     Dates: start: 20110601, end: 20110701
  5. HYDROCHLOROTHIAZIDE [Concomitant]
  6. METOPROLOL TARTRATE [Concomitant]
  7. CALCIUM SUPPLEMENT [Concomitant]

REACTIONS (2)
  - PARAESTHESIA [None]
  - HEADACHE [None]
